FAERS Safety Report 4917648-8 (Version None)
Quarter: 2006Q1

REPORT INFORMATION
  Report Type: 
  Country: None (occurrence: None)
  Receive Date: 20060215
  Receipt Date: 20060206
  Transmission Date: 20060701
  Serious: Yes (Other)
  Sender: FDA-Public Use
  Company Number: 2006-02-0274

PATIENT
  Age: 76 Year
  Sex: Female
  Weight: 74.8435 kg

DRUGS (7)
  1. LORATADINE [Suspect]
     Dosage: ORAL
     Route: 048
  2. ALEVE [Suspect]
     Indication: ARTHRITIS
     Dosage: 220-880 MG QD ORAL
     Route: 048
     Dates: start: 20051101, end: 20060101
  3. BENICAR [Concomitant]
  4. ATENOLOL [Concomitant]
  5. SYNTHROID [Concomitant]
  6. ZETIA [Concomitant]
  7. DYAZIDE [Concomitant]

REACTIONS (3)
  - BLOOD PRESSURE INCREASED [None]
  - SINUSITIS [None]
  - STRESS [None]
